FAERS Safety Report 7258337-7 (Version None)
Quarter: 2011Q1

REPORT INFORMATION
  Report Type: 
  Country: None (occurrence: None)
  Receive Date: 20110129
  Receipt Date: 20100728
  Transmission Date: 20110831
  Serious: Yes (Other)
  Sender: FDA-Public Use
  Company Number: US-ABBOTT-10P-163-0660599-00

PATIENT
  Sex: Male
  Weight: 68.1 kg

DRUGS (2)
  1. DOXAZOSIN [Concomitant]
     Indication: PROSTATOMEGALY
     Route: 048
  2. HUMIRA [Suspect]
     Indication: PSORIASIS
     Route: 058
     Dates: start: 20090512, end: 20100127

REACTIONS (2)
  - DYSPNOEA [None]
  - MANTLE CELL LYMPHOMA [None]
